FAERS Safety Report 8463429 (Version 3)
Quarter: 2015Q1

REPORT INFORMATION
  Report Type: Report from Study
  Country: US (occurrence: US)
  Receive Date: 20120316
  Receipt Date: 20150211
  Transmission Date: 20150721
  Serious: Yes (Death)
  Sender: FDA-Public Use
  Company Number: US-ROCHE-1049298

PATIENT
  Sex: Male

DRUGS (8)
  1. TAXOL [Concomitant]
     Active Substance: PACLITAXEL
     Route: 042
  2. EMEND [Concomitant]
     Active Substance: APREPITANT
     Route: 042
  3. DECADRON [Concomitant]
     Active Substance: DEXAMETHASONE
     Route: 042
  4. PEPCID [Concomitant]
     Active Substance: FAMOTIDINE
     Route: 042
  5. BENADRYL ALLERGY (UNITED STATES) [Concomitant]
     Route: 042
  6. CARBOPLATIN. [Concomitant]
     Active Substance: CARBOPLATIN
     Route: 042
  7. AVASTIN [Suspect]
     Active Substance: BEVACIZUMAB
     Indication: LUNG NEOPLASM MALIGNANT
     Route: 042
     Dates: start: 20101111
  8. ALOXI [Concomitant]
     Active Substance: PALONOSETRON HYDROCHLORIDE
     Route: 042

REACTIONS (1)
  - Disease progression [Fatal]
